FAERS Safety Report 6692789-6 (Version None)
Quarter: 2010Q2

REPORT INFORMATION
  Report Type: 
  Country: None (occurrence: None)
  Receive Date: 20100422
  Receipt Date: 20100413
  Transmission Date: 20101027
  Serious: Yes (Hospitalization)
  Sender: FDA-Public Use
  Company Number: CA-JNJFOC-20100303673

PATIENT
  Sex: Female
  Weight: 70 kg

DRUGS (1)
  1. REMICADE [Suspect]
     Indication: RHEUMATOID ARTHRITIS
     Route: 042

REACTIONS (6)
  - DIZZINESS [None]
  - FALL [None]
  - HYPOTENSION [None]
  - INFUSION RELATED REACTION [None]
  - LOWER LIMB FRACTURE [None]
  - NAUSEA [None]
